FAERS Safety Report 6819459-5 (Version None)
Quarter: 2010Q3

REPORT INFORMATION
  Report Type: 
  Country: None (occurrence: None)
  Receive Date: 20100707
  Receipt Date: 20100628
  Transmission Date: 20110219
  Serious: Yes (Hospitalization)
  Sender: FDA-Public Use
  Company Number: ZA-SANOFI-AVENTIS-2010SA037058

PATIENT
  Age: 30 Year
  Sex: Male

DRUGS (2)
  1. KETEK [Suspect]
     Dates: start: 20100624
  2. SINUCON ^LU-CHEM^ [Concomitant]

REACTIONS (1)
  - STEVENS-JOHNSON SYNDROME [None]
